FAERS Safety Report 6990581-6 (Version None)
Quarter: 2010Q3

REPORT INFORMATION
  Report Type: 
  Country: None (occurrence: None)
  Receive Date: 20100916
  Receipt Date: 20100706
  Transmission Date: 20110219
  Serious: Yes (Hospitalization)
  Sender: FDA-Public Use
  Company Number: BE-PFIZER INC-2010084286

PATIENT
  Sex: Male

DRUGS (3)
  1. LYRICA [Suspect]
     Indication: EPILEPSY
     Dosage: 75 MG, 2X/DAY
     Route: 048
     Dates: start: 20100622, end: 20100705
  2. PARACETAMOL [Suspect]
     Indication: MIGRAINE
     Dosage: MORE THAN 3000 MG PER DAY
     Route: 048
  3. REMERGON [Concomitant]
     Indication: EPILEPSY
     Dosage: 30 MG, 1X/DAY
     Route: 048
     Dates: start: 20100626, end: 20100705

REACTIONS (4)
  - ACUTE HEPATIC FAILURE [None]
  - ATRIAL FIBRILLATION [None]
  - RENAL FAILURE [None]
  - THROMBOCYTOPENIA [None]
